FAERS Safety Report 5914777-7 (Version None)
Quarter: 2008Q4

REPORT INFORMATION
  Report Type: 
  Country: None (occurrence: None)
  Receive Date: 20081010
  Receipt Date: 20081002
  Transmission Date: 20090506
  Serious: Yes (Hospitalization)
  Sender: FDA-Public Use
  Company Number: US-ROCHE-584131

PATIENT
  Sex: Female
  Weight: 61.7 kg

DRUGS (9)
  1. PEG-INTERFERON A-2A (RO 25-8310) [Suspect]
     Indication: HEPATITIS C
     Dosage: OTHER INDICATION REPORTED AS HIV.
     Route: 058
     Dates: start: 20080508, end: 20080724
  2. PEG-INTERFERON A-2A (RO 25-8310) [Suspect]
     Route: 058
  3. RIBAVIRIN [Suspect]
     Indication: HEPATITIS C
     Dosage: OTHER INDICATION REPORTED AS HIV. TAKEN IN TWO DOSES.
     Route: 048
     Dates: start: 20080508, end: 20080829
  4. RIBAVIRIN [Suspect]
     Route: 048
  5. ZYPREXA [Concomitant]
  6. UNSPECIFIED DRUGS [Concomitant]
     Dosage: DRUG REPORTED AS: SEVERAL DRUGS FOR HIV.
  7. ATRIPLA [Concomitant]
     Dosage: DOSAGE FORM REPORTED AS QD (EVERY DAY).
     Route: 048
  8. ZANTAC [Concomitant]
  9. CELEXA [Concomitant]
     Dates: start: 20080604

REACTIONS (1)
  - CONFUSIONAL STATE [None]
